FAERS Safety Report 5297041-1 (Version None)
Quarter: 2007Q1

REPORT INFORMATION
  Report Type: 
  Country: None (occurrence: None)
  Receive Date: 20070201
  Receipt Date: 20061003
  Transmission Date: 20070707
  Serious: No
  Sender: FDA-Public Use
  Company Number: 2006PV022452

PATIENT
  Age: 61 Year
  Sex: Female
  Weight: 94.3482 kg

DRUGS (4)
  1. BYETTA [Suspect]
     Indication: DRUG USE FOR UNKNOWN INDICATION
     Dosage: SEE IMAGE
     Route: 058
  2. AMARYL [Concomitant]
  3. TUSSIN [Concomitant]
  4. CLARITIN-D [Concomitant]

REACTIONS (2)
  - NASOPHARYNGITIS [None]
  - RHINORRHOEA [None]
